FAERS Safety Report 18115861 (Version 1)
Quarter: 2020Q3

REPORT INFORMATION
  Report Type: Spontaneous
  Country: US (occurrence: US)
  Receive Date: 20200806
  Receipt Date: 20200806
  Transmission Date: 20201103
  Serious: Yes (Hospitalization)
  Sender: FDA-Public Use
  Company Number: US-ABBVIE-20K-163-3513934-00

PATIENT
  Sex: Male

DRUGS (1)
  1. HUMIRA [Suspect]
     Active Substance: ADALIMUMAB
     Indication: COGAN^S SYNDROME
     Route: 058

REACTIONS (6)
  - Cogan^s syndrome [Unknown]
  - Off label use [Unknown]
  - Myalgia [Unknown]
  - Chest pain [Unknown]
  - Pain [Unknown]
  - Blood pressure increased [Unknown]
